FAERS Safety Report 8766639 (Version 1)
Quarter: 2012Q4

REPORT INFORMATION
  Report Type: 
  Country: CH (occurrence: CH)
  Receive Date: 20120904
  Receipt Date: 20120904
  Transmission Date: 20130627
  Serious: Yes (Hospitalization)
  Sender: FDA-Public Use
  Company Number: PHHY2012CH075247

PATIENT
  Age: 61 Year
  Sex: Male

DRUGS (3)
  1. SANDIMMUN NEORAL / OL [Suspect]
     Indication: CORNEAL TRANSPLANT
     Dosage: 100 mg, BID
     Route: 048
     Dates: start: 2000
  2. SPIRICORT [Suspect]
     Indication: SEASONAL ALLERGY
     Dosage: 50 mg, QD
     Route: 048
     Dates: end: 20120420
  3. PREDNISOLONE [Suspect]
     Route: 048
     Dates: start: 20120420

REACTIONS (5)
  - Nephroangiosclerosis [Unknown]
  - Pneumonia [Unknown]
  - Renal failure chronic [Unknown]
  - General physical health deterioration [Unknown]
  - Hypotonia [Unknown]
